FAERS Safety Report 14995133 (Version 1)
Quarter: 2018Q2

REPORT INFORMATION
  Report Type: Spontaneous
  Country: IN (occurrence: IN)
  Receive Date: 20180611
  Receipt Date: 20180611
  Transmission Date: 20180711
  Serious: Yes (Hospitalization, Other)
  Sender: FDA-Public Use
  Company Number: IN-MYLANLABS-2018M1038372

PATIENT
  Age: 30 Year
  Sex: Male

DRUGS (6)
  1. AZATHIOPRINE. [Suspect]
     Active Substance: AZATHIOPRINE
     Indication: LEPROSY
     Route: 065
  2. CLOFAZIMINE [Concomitant]
     Active Substance: CLOFAZIMINE
     Indication: LEPROSY
     Dosage: HIGHER DOSE
     Route: 065
  3. RIFAMPICIN [Concomitant]
     Active Substance: RIFAMPIN
     Indication: LEPROSY
     Dosage: DAILY FOR 15 DAYS
     Route: 065
  4. DAPSONE. [Suspect]
     Active Substance: DAPSONE
     Indication: LEPROSY
     Route: 065
  5. PREDNISOLONE. [Suspect]
     Active Substance: PREDNISOLONE
     Indication: LEPROSY
     Dosage: HIGHER DOSE
     Route: 065
  6. PREDNISOLONE. [Suspect]
     Active Substance: PREDNISOLONE
     Dosage: 10 MG, QD, DOSE WAS TAPERED OVER THE PERIOD OF 6 MONTHS
     Route: 065

REACTIONS (6)
  - Seizure [Unknown]
  - Pulmonary nocardiosis [Recovered/Resolved]
  - Hemiplegia [Unknown]
  - Leukopenia [Unknown]
  - Nocardiosis [Recovered/Resolved]
  - Cutaneous nocardiosis [Recovered/Resolved]
